FAERS Safety Report 5147389-6 (Version None)
Quarter: 2006Q4

REPORT INFORMATION
  Report Type: 
  Country: None (occurrence: None)
  Receive Date: 20061106
  Receipt Date: 20061031
  Transmission Date: 20070319
  Serious: Yes (Other)
  Sender: FDA-Public Use
  Company Number: T06-USA-03771-01

PATIENT
  Age: 17 Year
  Sex: Female
  Weight: 77.1115 kg

DRUGS (7)
  1. ESCITALOPRAM              (DOUBLE-BLIND) [Suspect]
     Indication: MAJOR DEPRESSION
     Dosage: 10 MG QD PO
     Route: 048
     Dates: start: 20060906, end: 20060913
  2. ESCITALOPRAM                 (DOUBLE-BLIND) [Suspect]
     Indication: MAJOR DEPRESSION
     Dosage: 20 MG QD PO
     Route: 048
     Dates: start: 20060803, end: 20060905
  3. ESCITALOPRAM                         (DOUBLE-BLIND) [Suspect]
     Indication: MAJOR DEPRESSION
     Dosage: 10 MG QD PO
     Route: 048
     Dates: start: 20060711, end: 20060802
  4. PLACEBO (SINGLE-BLIND) (PLACEBO) [Suspect]
     Indication: MAJOR DEPRESSION
     Dosage: 1 TABLET QD PO
     Route: 048
     Dates: start: 20060628, end: 20060710
  5. YAZ [Concomitant]
  6. IRON  SUPPLEMENT (IRON) [Concomitant]
  7. SUDAFED 12 HOUR [Concomitant]

REACTIONS (3)
  - ALCOHOL POISONING [None]
  - AMNESIA [None]
  - SEXUAL ASSAULT VICTIM [None]
